FAERS Safety Report 6699375-2 (Version None)
Quarter: 2010Q2

REPORT INFORMATION
  Report Type: 
  Country: None (occurrence: None)
  Receive Date: 20100427
  Receipt Date: 20100422
  Transmission Date: 20101027
  Serious: Yes (Other)
  Sender: FDA-Public Use
  Company Number: BR-ABBOTT-10P-020-0627659-00

PATIENT
  Sex: Male
  Weight: 57 kg

DRUGS (4)
  1. HUMIRA [Suspect]
     Indication: ANKYLOSING SPONDYLITIS
     Route: 058
     Dates: end: 20091101
  2. PREDNISONE TAB [Concomitant]
     Indication: ANKYLOSING SPONDYLITIS
     Route: 048
  3. IBUPROFEN [Concomitant]
     Indication: PAIN
     Route: 048
  4. TOFRANIL [Concomitant]
     Indication: AGITATION
     Route: 048
     Dates: start: 20050101

REACTIONS (5)
  - BLOOD PRESSURE FLUCTUATION [None]
  - DIZZINESS [None]
  - HYPERTENSION [None]
  - INFLUENZA [None]
  - INJECTION SITE PAIN [None]
